FAERS Safety Report 5093488-7 (Version None)
Quarter: 2006Q3

REPORT INFORMATION
  Report Type: 
  Country: None (occurrence: None)
  Receive Date: 20060728
  Receipt Date: 20060609
  Transmission Date: 20061208
  Serious: Yes (Other)
  Sender: FDA-Public Use
  Company Number: 28165

PATIENT
  Age: 74 Year
  Sex: Male
  Weight: 55 kg

DRUGS (2)
  1. ETOPOSIDE [Suspect]
     Indication: GASTRIC CANCER
     Dosage: 120 MG/IV/ DAILY FOR 3 DAYS
     Route: 042
     Dates: start: 20060609
  2. 5-FLOROURACIL [Concomitant]

REACTIONS (1)
  - EXTRAVASATION [None]
